FAERS Safety Report 10052584 (Version 4)
Quarter: 2018Q2

REPORT INFORMATION
  Report Type: Report from Study
  Country: BR (occurrence: BR)
  Receive Date: 20140402
  Receipt Date: 20180404
  Transmission Date: 20180711
  Serious: Yes (Hospitalization, Other)
  Sender: FDA-Public Use
  Company Number: BR-ROCHE-1022280

PATIENT
  Sex: Female
  Weight: 53 kg

DRUGS (4)
  1. ENALAPRIL [Concomitant]
     Active Substance: ENALAPRIL
     Indication: HYPERTENSION
     Route: 065
  2. ACTEMRA [Suspect]
     Active Substance: TOCILIZUMAB
     Indication: RHEUMATOID ARTHRITIS
  3. ACTEMRA [Suspect]
     Active Substance: TOCILIZUMAB
     Indication: AMYLOIDOSIS
     Route: 042
     Dates: start: 20111006
  4. CODEINE [Concomitant]
     Active Substance: CODEINE
     Indication: PAIN

REACTIONS (8)
  - Osteitis [Recovered/Resolved]
  - Trigeminal nerve disorder [Recovered/Resolved]
  - Impaired healing [Recovered/Resolved]
  - Tooth infection [Recovered/Resolved]
  - Pharyngitis [Recovered/Resolved]
  - Diabetes mellitus [Unknown]
  - Infection [Unknown]
  - Blood parathyroid hormone increased [Not Recovered/Not Resolved]

NARRATIVE: CASE EVENT DATE: 2012
